FAERS Safety Report 4337656-8 (Version None)
Quarter: 2004Q2

REPORT INFORMATION
  Report Type: 
  Country: None (occurrence: None)
  Receive Date: 20040408
  Receipt Date: 20040331
  Transmission Date: 20050107
  Serious: Yes (Other)
  Sender: FDA-Public Use
  Company Number: 2004-03-2286

PATIENT
  Age: 9 Year
  Sex: 0

DRUGS (1)
  1. AERIUS (DESLORATADINE) TABLETS  'LIKE CLARINEX' [Suspect]
     Indication: RHINITIS ALLERGIC
     Dosage: 2.5 MG QD ORAL
     Route: 048

REACTIONS (4)
  - ABNORMAL BEHAVIOUR [None]
  - AFFECT LABILITY [None]
  - ANXIETY [None]
  - SUICIDAL IDEATION [None]
